FAERS Safety Report 7771284-7 (Version None)
Quarter: 2011Q3

REPORT INFORMATION
  Report Type: 
  Country: None (occurrence: None)
  Receive Date: 20110922
  Receipt Date: 20110919
  Transmission Date: 20111222
  Serious: Yes (Other)
  Sender: FDA-Public Use
  Company Number: GB-PFIZER INC-2011152524

PATIENT
  Age: 67 Year
  Sex: Female
  Weight: 55 kg

DRUGS (1)
  1. SERTRALINE HYDROCHLORIDE [Suspect]
     Dosage: 50 MG, 1X/DAY
     Dates: start: 20110704

REACTIONS (15)
  - GAIT DISTURBANCE [None]
  - VISION BLURRED [None]
  - MALAISE [None]
  - CHILLS [None]
  - DIARRHOEA [None]
  - HYPERHIDROSIS [None]
  - DRY MOUTH [None]
  - PARAESTHESIA [None]
  - TREMOR [None]
  - DIZZINESS [None]
  - PALLOR [None]
  - PALPITATIONS [None]
  - FALL [None]
  - FEELING ABNORMAL [None]
  - SHOCK [None]
